FAERS Safety Report 6411604-9 (Version None)
Quarter: 2009Q4

REPORT INFORMATION
  Report Type: 
  Country: None (occurrence: None)
  Receive Date: 20091020
  Receipt Date: 20091008
  Transmission Date: 20100525
  Serious: Yes (Hospitalization)
  Sender: FDA-Public Use
  Company Number: 239206K09USA

PATIENT
  Age: 45 Year
  Sex: Female
  Weight: 75 kg

DRUGS (3)
  1. REBIF [Suspect]
     Indication: MULTIPLE SCLEROSIS
     Dosage: 8/8 MCG, 3 IN 1 WEEKS, SUBCUTANEOUS; 22 MCG, ONCE, SUBCUTANEOUS
     Route: 058
     Dates: start: 20090603, end: 20090101
  2. REBIF [Suspect]
     Indication: MULTIPLE SCLEROSIS
     Dosage: 8/8 MCG, 3 IN 1 WEEKS, SUBCUTANEOUS; 22 MCG, ONCE, SUBCUTANEOUS
     Route: 058
     Dates: start: 20090709, end: 20090716
  3. TIZANIDINE HCL [Concomitant]

REACTIONS (7)
  - CONDITION AGGRAVATED [None]
  - DIPLEGIA [None]
  - FACIAL PALSY [None]
  - HYPOAESTHESIA [None]
  - MULTIPLE SCLEROSIS [None]
  - MUSCULAR WEAKNESS [None]
  - URINARY INCONTINENCE [None]
